FAERS Safety Report 21568504 (Version 1)
Quarter: 2022Q4

REPORT INFORMATION
  Report Type: Spontaneous
  Country: US (occurrence: US)
  Receive Date: 20221108
  Receipt Date: 20221108
  Transmission Date: 20230113
  Serious: Yes (Hospitalization)
  Sender: FDA-Public Use
  Company Number: US-CARA THERAPEUTICS, INC.-2022-00126-US

PATIENT

DRUGS (1)
  1. KORSUVA [Suspect]
     Active Substance: DIFELIKEFALIN ACETATE
     Indication: Product used for unknown indication
     Dosage: 0.7 MILLILITER POST DIALYSIS
     Route: 065
     Dates: start: 20220921

REACTIONS (6)
  - Diarrhoea [Not Recovered/Not Resolved]
  - Abdominal pain upper [Unknown]
  - Pyrexia [Recovered/Resolved]
  - Escherichia urinary tract infection [Unknown]
  - Infection [Unknown]
  - Nausea [Unknown]

NARRATIVE: CASE EVENT DATE: 20220101
